FAERS Safety Report 11148013 (Version 1)
Quarter: 2015Q2

REPORT INFORMATION
  Report Type: Spontaneous
  Country: FR (occurrence: FR)
  Receive Date: 20150529
  Receipt Date: 20150529
  Transmission Date: 20150821
  Serious: Yes (Hospitalization)
  Sender: FDA-Public Use
  Company Number: FR-ROCHE-1584939

PATIENT
  Age: 16 Year
  Sex: Female

DRUGS (1)
  1. MABTHERA [Suspect]
     Active Substance: RITUXIMAB
     Indication: NEUROMYELITIS OPTICA
     Dosage: 2 CYCLES AT 15 DAYS INTERVAL AND THEN 1 CYCLE EVERY 6 MONTHS.
     Route: 042
     Dates: start: 201312, end: 201412

REACTIONS (3)
  - Teratoma [Unknown]
  - Abdominal pain [Unknown]
  - Diarrhoea [Unknown]

NARRATIVE: CASE EVENT DATE: 201502
